FAERS Safety Report 10228180 (Version 1)
Quarter: 2014Q2

REPORT INFORMATION
  Report Type: Spontaneous
  Country: US (occurrence: US)
  Receive Date: 20140610
  Receipt Date: 20140610
  Transmission Date: 20141212
  Serious: No
  Sender: FDA-Public Use
  Company Number: US-B.I. PHARMACEUTICALS,INC./RIDGEFIELD-2014-BI-24306BP

PATIENT
  Age: 63 Year
  Sex: Female

DRUGS (2)
  1. ZANTAC 150 (RANITIDINE HYDROCHLORIDE) [Suspect]
     Indication: URTICARIA
     Dosage: 300 MG
     Route: 048
     Dates: start: 201402, end: 20140522
  2. ZANTAC 150 (RANITIDINE HYDROCHLORIDE) [Suspect]
     Dosage: 600 MG
     Route: 048
     Dates: start: 20140522

REACTIONS (3)
  - Overdose [Unknown]
  - Off label use [Unknown]
  - Off label use [Unknown]
